FAERS Safety Report 15147938 (Version 1)
Quarter: 2018Q3

REPORT INFORMATION
  Report Type: Spontaneous
  Country: FR (occurrence: FR)
  Receive Date: 20180716
  Receipt Date: 20180716
  Transmission Date: 20181010
  Serious: Yes (Death)
  Sender: FDA-Public Use
  Company Number: PHHY2018FR036847

PATIENT
  Age: 42 Year
  Sex: Female

DRUGS (5)
  1. METHOTREXATE SODIUM. [Suspect]
     Active Substance: METHOTREXATE SODIUM
     Indication: BENIGN BREAST NEOPLASM
     Route: 065
  2. VINCRISTINE [Suspect]
     Active Substance: VINCRISTINE
     Indication: BENIGN BREAST NEOPLASM
     Dosage: 12 MG/M2, UNK
     Route: 065
  3. CYCLOPHOSPHAMIDE. [Suspect]
     Active Substance: CYCLOPHOSPHAMIDE
     Indication: BENIGN BREAST NEOPLASM
     Route: 065
  4. MITOXANTRONE [Suspect]
     Active Substance: MITOXANTRONE HYDROCHLORIDE
     Indication: BENIGN BREAST NEOPLASM
     Dosage: 60 MG/M2, UNK
     Route: 065
  5. FLUOROURACIL. [Suspect]
     Active Substance: FLUOROURACIL
     Indication: BENIGN BREAST NEOPLASM
     Route: 065

REACTIONS (2)
  - Second primary malignancy [Fatal]
  - Acute promyelocytic leukaemia [Fatal]
